FAERS Safety Report 6273852-0 (Version None)
Quarter: 2009Q3

REPORT INFORMATION
  Report Type: 
  Country: None (occurrence: None)
  Receive Date: 20090720
  Receipt Date: 20090715
  Transmission Date: 20100115
  Serious: Yes (Hospitalization)
  Sender: FDA-Public Use
  Company Number: US-B.I. PHARMACEUTICALS,INC./RIDGEFIELD-2009-BP-07140BP

PATIENT
  Sex: Female
  Weight: 81.8 kg

DRUGS (20)
  1. SPIRIVA [Suspect]
     Indication: CHRONIC OBSTRUCTIVE PULMONARY DISEASE
     Dosage: 1 PUF
     Dates: start: 20060501
  2. SPIRIVA [Suspect]
     Indication: EMPHYSEMA
  3. SPIRIVA [Suspect]
     Indication: BRONCHITIS CHRONIC
  4. SPIRIVA [Suspect]
     Indication: ASTHMA
  5. SPIRIVA [Suspect]
     Indication: DYSPNOEA
  6. DULCOLAX [Suspect]
  7. ALBUTEROL SULFATE [Concomitant]
     Indication: DYSPNOEA
  8. ATROVENT [Concomitant]
     Indication: DYSPNOEA
  9. BROMIDE [Concomitant]
  10. BENICAR [Concomitant]
     Dosage: 40 MG
  11. COREG [Concomitant]
     Dosage: 12.5 MG
  12. IMDUR [Concomitant]
  13. PLAVIX [Concomitant]
     Dosage: 75 MG
  14. OMEPRAZOLE [Concomitant]
     Dosage: 40 MG
  15. ISOSORBIDE [Concomitant]
     Dosage: 30 MG
  16. LASIX [Concomitant]
     Dosage: 20 MG
  17. MAGNESIUM SULFATE [Concomitant]
     Dosage: 400 MG
  18. VYTORIN [Concomitant]
  19. LEXAPRO [Concomitant]
     Dosage: 10 MG
  20. SOTALOL [Concomitant]
     Dosage: 160 MG

REACTIONS (7)
  - ACUTE PULMONARY OEDEMA [None]
  - DIARRHOEA [None]
  - DRY MOUTH [None]
  - DYSPNOEA [None]
  - ENTERITIS INFECTIOUS [None]
  - RENAL DISORDER [None]
  - RENAL NEOPLASM [None]
